FAERS Safety Report 5528707-3 (Version None)
Quarter: 2007Q4

REPORT INFORMATION
  Report Type: 
  Country: None (occurrence: None)
  Receive Date: 20071129
  Receipt Date: 20071120
  Transmission Date: 20080405
  Serious: Yes (Hospitalization)
  Sender: FDA-Public Use
  Company Number: US-JNJFOC-20071108858

PATIENT
  Age: 56 Year
  Sex: Male

DRUGS (4)
  1. TOPAMAX [Suspect]
     Indication: MIGRAINE PROPHYLAXIS
     Dosage: ON THERAPY FOR A ^FEW YEARS^
     Route: 048
  2. EFFEXOR [Concomitant]
     Indication: DEPRESSION
     Route: 048
  3. XANAX [Concomitant]
     Indication: ANXIETY
  4. VICODIN [Concomitant]
     Indication: PAIN

REACTIONS (2)
  - DRUG ABUSE [None]
  - TRANSIENT ISCHAEMIC ATTACK [None]
